FAERS Safety Report 9535817 (Version 1)
Quarter: 2013Q3

REPORT INFORMATION
  Report Type: Spontaneous
  Country: US (occurrence: None)
  Receive Date: 20130917
  Receipt Date: 20130917
  Transmission Date: 20140515
  Serious: Yes (Disabling)
  Sender: FDA-Public Use
  Company Number: None

PATIENT
  Age: 73 Year
  Sex: Female
  Weight: 73.48 kg

DRUGS (9)
  1. ESTRACE CREAM, 0.01% [Suspect]
     Indication: SURGERY
     Route: 067
     Dates: start: 201209, end: 201212
  2. FISH OIL [Concomitant]
  3. CALCIUM W/D [Concomitant]
  4. ASPIRIN [Concomitant]
  5. GLUCOSAMINE W/CHOND [Concomitant]
  6. MVI PEDIATRIC [Concomitant]
  7. LISINOPRIL [Suspect]
  8. TRIAMTERENE [Suspect]
  9. FLONASE [Suspect]

REACTIONS (10)
  - Muscle rigidity [None]
  - Insomnia [None]
  - Myalgia [None]
  - Depression [None]
  - Muscle spasms [None]
  - Sensory disturbance [None]
  - Presyncope [None]
  - Dyspnoea [None]
  - Fatigue [None]
  - Muscle rupture [None]
